FAERS Safety Report 9555306 (Version 5)
Quarter: 2015Q2

REPORT INFORMATION
  Report Type: Spontaneous
  Country: US (occurrence: US)
  Receive Date: 20130926
  Receipt Date: 20150524
  Transmission Date: 20150821
  Serious: Yes (Other)
  Sender: FDA-Public Use
  Company Number: US-JNJFOC-20130710983

PATIENT
  Age: 58 Year
  Sex: Male

DRUGS (4)
  1. NORCO [Concomitant]
     Active Substance: ACETAMINOPHEN\HYDROCODONE BITARTRATE
     Route: 048
  2. LUPRON [Concomitant]
     Active Substance: LEUPROLIDE ACETATE
     Route: 065
  3. PREDNISONE. [Concomitant]
     Active Substance: PREDNISONE
     Indication: PROSTATE CANCER
     Route: 048
     Dates: start: 20130601, end: 201307
  4. ZYTIGA [Suspect]
     Active Substance: ABIRATERONE ACETATE
     Indication: PROSTATE CANCER METASTATIC
     Dosage: 4 TABLETS OF 250 MG AT ONCE.
     Route: 048
     Dates: start: 20130701, end: 201307

REACTIONS (6)
  - Alanine aminotransferase increased [Not Recovered/Not Resolved]
  - Blood alkaline phosphatase increased [Not Recovered/Not Resolved]
  - Nausea [Unknown]
  - Prostatic specific antigen increased [Not Recovered/Not Resolved]
  - Pyrexia [Unknown]
  - Aspartate aminotransferase increased [Not Recovered/Not Resolved]

NARRATIVE: CASE EVENT DATE: 20130712
